FAERS Safety Report 4281818-5 (Version None)
Quarter: 2004Q1

REPORT INFORMATION
  Report Type: 
  Country: None (occurrence: None)
  Receive Date: 20040129
  Receipt Date: 20040129
  Transmission Date: 20041129
  Serious: Yes (Other)
  Sender: FDA-Public Use
  Company Number: None

PATIENT
  Age: 40 Year
  Sex: Female
  Weight: 68.0396 kg

DRUGS (1)
  1. LEVAQUIN [Suspect]
     Indication: PNEUMONIA
     Dosage: 500 MG ONCE DAILY ORAL
     Route: 048
     Dates: start: 20030501, end: 20030503

REACTIONS (5)
  - ARTHRALGIA [None]
  - BLISTER [None]
  - HYPERSENSITIVITY [None]
  - MYALGIA [None]
  - RASH [None]
